FAERS Safety Report 14074460 (Version 1)
Quarter: 2017Q4

REPORT INFORMATION
  Report Type: Spontaneous
  Country: US (occurrence: None)
  Receive Date: 20171011
  Receipt Date: 20171011
  Transmission Date: 20180321
  Serious: Yes (Hospitalization)
  Sender: FDA-Public Use
  Company Number: None

PATIENT
  Age: 68 Year
  Sex: Male

DRUGS (1)
  1. RIVAROXABAN [Suspect]
     Active Substance: RIVAROXABAN
     Indication: ATRIAL FIBRILLATION
     Dosage: FREQUENCY - PM
     Route: 048
     Dates: start: 20170411, end: 20170721

REACTIONS (2)
  - Encephalopathy [None]
  - Subdural haematoma [None]

NARRATIVE: CASE EVENT DATE: 20170721
